FAERS Safety Report 10721621 (Version 3)
Quarter: 2015Q4

REPORT INFORMATION
  Report Type: Spontaneous
  Country: DK (occurrence: DK)
  Receive Date: 20150119
  Receipt Date: 20151201
  Transmission Date: 20160304
  Serious: Yes (Hospitalization, Disabling, Congenital Anomaly)
  Sender: FDA-Public Use
  Company Number: PHHY2015DK002479

PATIENT
  Sex: Male

DRUGS (1)
  1. CITALOPRAM [Suspect]
     Active Substance: CITALOPRAM HYDROBROMIDE
     Indication: DEPRESSION
     Dosage: (MATERNAL DOSE:20 MG QD)
     Route: 064
     Dates: start: 2014, end: 20141203

REACTIONS (4)
  - Foetal growth restriction [Unknown]
  - Arrhythmia [Recovering/Resolving]
  - Limb malformation [Unknown]
  - Foetal exposure during pregnancy [Recovered/Resolved]
